FAERS Safety Report 14147489 (Version 1)
Quarter: 2017Q4

REPORT INFORMATION
  Report Type: Spontaneous
  Country: JP (occurrence: JP)
  Receive Date: 20171031
  Receipt Date: 20171031
  Transmission Date: 20180321
  Serious: Yes (Hospitalization)
  Sender: FDA-Public Use
  Company Number: JP-BAUSCH-BL-2017-030271

PATIENT
  Age: 77 Year
  Sex: Male

DRUGS (1)
  1. MOVIPREP [Suspect]
     Active Substance: ASCORBIC ACID\POLYETHYLENE GLYCOL 3350\POTASSIUM CHLORIDE\SODIUM ASCORBATE\SODIUM CHLORIDE\SODIUM SULFATE
     Indication: BOWEL PREPARATION
     Route: 048

REACTIONS (5)
  - Crowned dens syndrome [Recovered/Resolved]
  - Back pain [Recovered/Resolved]
  - Neck pain [Recovered/Resolved]
  - Arthralgia [Recovered/Resolved]
  - Pyrexia [Recovered/Resolved]
